FAERS Safety Report 17560505 (Version 1)
Quarter: 2020Q1

REPORT INFORMATION
  Report Type: Spontaneous
  Country: US (occurrence: US)
  Receive Date: 20200319
  Receipt Date: 20200319
  Transmission Date: 20200409
  Serious: Yes (Hospitalization)
  Sender: FDA-Public Use
  Company Number: None

PATIENT
  Age: 84 Year
  Sex: Female

DRUGS (8)
  1. OXYCOD/APAP TAB 5-325 MG [Concomitant]
  2. OMEPRAZOLE CAP 20 MG [Concomitant]
  3. CEPHALEXIN CAP 500 MG [Concomitant]
  4. FORTEO [Suspect]
     Active Substance: TERIPARATIDE
     Indication: OSTEOPOROSIS
     Route: 058
     Dates: start: 20181129
  5. SMZ/TMP DE TAB 800-160 [Concomitant]
  6. GABAPENTIN CAP 400 MG [Concomitant]
  7. NITROGLYCERIN SUB 0.4 MG [Concomitant]
  8. DIAZEPAM TAB 10 MG [Concomitant]

REACTIONS (4)
  - Urinary tract infection [None]
  - Diarrhoea [None]
  - Fall [None]
  - Therapy cessation [None]

NARRATIVE: CASE EVENT DATE: 20200307
